FAERS Safety Report 7745749-8 (Version None)
Quarter: 2011Q3

REPORT INFORMATION
  Report Type: 
  Country: None (occurrence: None)
  Receive Date: 20110907
  Receipt Date: 20110824
  Transmission Date: 20111222
  Serious: Yes (Hospitalization)
  Sender: FDA-Public Use
  Company Number: TCI2011A04593

PATIENT
  Age: 68 Year
  Sex: Male

DRUGS (3)
  1. GLUCOBAY [Concomitant]
  2. METGLUCO (METFORMIN HYDROCHLORIDE) [Concomitant]
  3. ACTOS [Suspect]
     Indication: DIABETES MELLITUS
     Dosage: 15 MG (15 MG, 1 D), PER ORAL
     Route: 048
     Dates: start: 20070401, end: 20110824

REACTIONS (1)
  - BLADDER CANCER [None]
